FAERS Safety Report 18777154 (Version 2)
Quarter: 2021Q1

REPORT INFORMATION
  Report Type: Report from Study
  Country: CH (occurrence: CH)
  Receive Date: 20210122
  Receipt Date: 20210209
  Transmission Date: 20210419
  Serious: Yes (Other)
  Sender: FDA-Public Use
  Company Number: CH-009507513-2101CHE008333

PATIENT
  Age: 0 Year
  Sex: Female
  Weight: 1.93 kg

DRUGS (9)
  1. AMLODIPINE [Suspect]
     Active Substance: AMLODIPINE BESYLATE
     Indication: HYPERTENSION
     Dosage: 5 MILLIGRAM, QD
     Route: 064
  2. HALDOL [Suspect]
     Active Substance: HALOPERIDOL
     Dosage: 12 MG, QD, EXACT TREATMENT START DATE UNKNOWN
     Route: 064
     Dates: start: 2020
  3. APROVEL [Suspect]
     Active Substance: IRBESARTAN
     Indication: HYPERTENSION
     Dosage: 300 MG, QD, EXACT END DATE OF TAKING TREATMENT UNKNOWN
     Route: 064
     Dates: start: 2020, end: 2020
  4. AKINETON [Suspect]
     Active Substance: BIPERIDEN HYDROCHLORIDE
     Dosage: 4 MG, QD, EXACT TREATMENT START DATE UNKNOWN
     Route: 064
     Dates: start: 2020
  5. TRUVADA [Suspect]
     Active Substance: EMTRICITABINE\TENOFOVIR DISOPROXIL FUMARATE
     Indication: PROPHYLAXIS AGAINST HIV INFECTION
     Dosage: 1 DOSAGE FROM, QD, DURATION OF TREATMENT UNKNOWN
     Route: 064
     Dates: start: 20200525
  6. CANNABIS SATIVA [Suspect]
     Active Substance: CANNABIS SATIVA FLOWERING TOP
  7. ISENTRESS [Suspect]
     Active Substance: RALTEGRAVIR POTASSIUM
     Dosage: 400 MG, QOD, DURATION OF TREATMENT UNKNOWN
     Route: 064
     Dates: start: 20200525
  8. CIPRALEX [Suspect]
     Active Substance: ESCITALOPRAM OXALATE
     Dosage: 20 MILLIGRAM, QD
     Route: 064
  9. TEMESTA [LORAZEPAM] [Suspect]
     Active Substance: LORAZEPAM
     Dosage: AS NECESSARY
     Route: 064
     Dates: start: 2020

REACTIONS (5)
  - Premature baby [Recovered/Resolved]
  - Microcephaly [Unknown]
  - Foetal growth restriction [Recovered/Resolved]
  - Exposure during pregnancy [Recovered/Resolved]
  - Cardiac murmur [Unknown]

NARRATIVE: CASE EVENT DATE: 202001
